FAERS Safety Report 9897826 (Version 1)
Quarter: 2014Q1

REPORT INFORMATION
  Report Type: Spontaneous
  Country: DE (occurrence: DE)
  Receive Date: 20140214
  Receipt Date: 20140214
  Transmission Date: 20141002
  Serious: Yes (Congenital Anomaly, Other)
  Sender: FDA-Public Use
  Company Number: DE-DRREDDYS-GER/GER/14/0038079

PATIENT
  Age: 1 Day
  Sex: Female
  Weight: 3.82 kg

DRUGS (2)
  1. CITALOPRAM [Suspect]
     Indication: PRODUCT USED FOR UNKNOWN INDICATION
     Route: 064
     Dates: start: 20120820, end: 20130519
  2. FOLIO [Concomitant]
     Indication: PRODUCT USED FOR UNKNOWN INDICATION
     Route: 064
     Dates: start: 20120901, end: 20130515

REACTIONS (7)
  - Ventricular septal defect [Not Recovered/Not Resolved]
  - Atrial septal defect [Recovering/Resolving]
  - Patent ductus arteriosus [Recovered/Resolved]
  - Congenital tricuspid valve incompetence [Not Recovered/Not Resolved]
  - Neonatal respiratory distress syndrome [Recovered/Resolved]
  - Persistent foetal circulation [Recovering/Resolving]
  - Foetal exposure during pregnancy [Unknown]
